FAERS Safety Report 11820501 (Version 1)
Quarter: 2015Q4

REPORT INFORMATION
  Report Type: Spontaneous
  Country: US (occurrence: US)
  Receive Date: 20151210
  Receipt Date: 20151210
  Transmission Date: 20160305
  Serious: No
  Sender: FDA-Public Use
  Company Number: US-JNJFOC-20150705110

PATIENT
  Age: 88 Year
  Sex: Male

DRUGS (3)
  1. IMBRUVICA [Suspect]
     Active Substance: IBRUTINIB
     Indication: CHRONIC LYMPHOCYTIC LEUKAEMIA
     Route: 048
     Dates: start: 20150602, end: 201506
  2. LISINOPRIL. [Concomitant]
     Active Substance: LISINOPRIL
  3. CENTRUM (MINERALS NOS, VITAMINS NOS) [Concomitant]

REACTIONS (5)
  - Fatigue [Unknown]
  - Rash [Unknown]
  - Incorrect dose administered [Recovered/Resolved]
  - Asthenia [Unknown]
  - Peripheral swelling [Unknown]

NARRATIVE: CASE EVENT DATE: 201506
